FAERS Safety Report 21612190 (Version 1)
Quarter: 2022Q4

REPORT INFORMATION
  Report Type: Spontaneous
  Country: DE (occurrence: DE)
  Receive Date: 20221118
  Receipt Date: 20221118
  Transmission Date: 20230113
  Serious: Yes (Death, Hospitalization, Other)
  Sender: FDA-Public Use
  Company Number: None

PATIENT
  Age: 79 Year
  Sex: Female
  Weight: 80 kg

DRUGS (9)
  1. LEFLUNOMIDE [Suspect]
     Active Substance: LEFLUNOMIDE
     Indication: Rheumatic disorder
     Dosage: 1 X 20 MG EVERY 2 DAYS,  FORM STRENGTH : 20 MG , UNIT DOSE : 20 MG , FREQUENCY TIME : 2 DAYS
  2. PREDNISOLONE [Suspect]
     Active Substance: PREDNISOLONE
     Indication: Rheumatic disorder
     Dosage: 2 MILLIGRAM DAILY; 1-0-0 , FORM STRENGTH : 2 MG
  3. METHOTREXATE SODIUM [Suspect]
     Active Substance: METHOTREXATE SODIUM
     Indication: Rheumatic disorder
     Dosage: 1X ON SUNDAYS , FORM STRENGTH : 10 MG
  4. METAMIZOLE [Suspect]
     Active Substance: METAMIZOLE
     Indication: Rheumatic disorder
     Dosage: 4 X 40  , DROPS , UNIT DOSE : 160 GTT , FREQUENCY TIME : 1 DAY
     Route: 065
  5. TORSEMIDE [Concomitant]
     Active Substance: TORSEMIDE
     Indication: Aortic valve stenosis
     Dosage: 2.5 MILLIGRAM DAILY; 0,5-0-0 , FORM STRENGTH :  5 MG
  6. PANTOZOL [Concomitant]
     Active Substance: PANTOPRAZOLE SODIUM
     Indication: Gastritis
     Dosage: 40 MILLIGRAM DAILY; 1-0-0 , FORM STRENGTH :  40 MG
  7. FENTANYL TRANSDERMAL SYSTEM [Concomitant]
     Active Substance: FENTANYL
     Indication: Rheumatic disorder
     Dosage: EVERY 3 DAYS,   12UG/H , UNIT DOSE : 1 DF , FREQUENCY TIME : 3 DAYS
  8. METOPROLOL [Concomitant]
     Active Substance: METOPROLOL
     Indication: Aortic valve stenosis
     Dosage: 95 MILLIGRAM DAILY; 1-0-1, FORM STRENGTH : 47,5 MG
  9. POLYETHYLENE GLYCOLS [Concomitant]
     Active Substance: POLYETHYLENE GLYCOLS
     Indication: Constipation
     Dosage: 2 DOSAGE FORMS DAILY; 1-0-1

REACTIONS (5)
  - Agranulocytosis [Fatal]
  - Thrombocytopenia [Fatal]
  - Colitis [Fatal]
  - Septic shock [Fatal]
  - Pancytopenia [Fatal]

NARRATIVE: CASE EVENT DATE: 20221022
